FAERS Safety Report 6939620-9 (Version None)
Quarter: 2010Q3

REPORT INFORMATION
  Report Type: 
  Country: None (occurrence: None)
  Receive Date: 20100824
  Receipt Date: 20100810
  Transmission Date: 20110219
  Serious: Yes (Hospitalization)
  Sender: FDA-Public Use
  Company Number: IT-MYLANLABS-2010S1014490

PATIENT
  Age: 65 Year
  Sex: Male

DRUGS (4)
  1. LANSOPRAZOLE [Suspect]
     Indication: BARRETT'S OESOPHAGUS
     Dosage: 30 MG/DAY
     Route: 065
  2. PANTOPRAZOLE [Suspect]
     Indication: BARRETT'S OESOPHAGUS
     Dosage: 40 MG/DAY
     Route: 065
  3. METFORMIN [Concomitant]
  4. CANDESARTAN CILEXETIL [Concomitant]
     Dosage: 16 MG/DAY
     Route: 065

REACTIONS (1)
  - HYPOMAGNESAEMIA [None]
